FAERS Safety Report 7594198-4 (Version None)
Quarter: 2011Q3

REPORT INFORMATION
  Report Type: 
  Country: None (occurrence: None)
  Receive Date: 20110706
  Receipt Date: 20110630
  Transmission Date: 20111222
  Serious: Yes (Hospitalization)
  Sender: FDA-Public Use
  Company Number: DK-ABBOTT-11P-044-0729745-00

PATIENT
  Sex: Male
  Weight: 100 kg

DRUGS (7)
  1. HUMIRA [Suspect]
     Indication: ANKYLOSING SPONDYLITIS
     Dates: start: 20110322
  2. AZATHIOPRINE SODIUM [Concomitant]
     Indication: CROHN'S DISEASE
  3. REMERON [Concomitant]
     Indication: DEPRESSION
     Dosage: 15MG DAILY
     Dates: start: 20020101
  4. HUMIRA [Suspect]
     Indication: CROHN'S DISEASE
  5. AZATHIOPRINE SODIUM [Concomitant]
     Indication: ANKYLOSING SPONDYLITIS
  6. ZOLOFT [Concomitant]
     Indication: DEPRESSION
     Dosage: 50MG DAILY
     Dates: start: 20020101
  7. UNSPECIFIED ANTIDEPRESSANT [Concomitant]
     Indication: PRODUCT USED FOR UNKNOWN INDICATION

REACTIONS (8)
  - NAUSEA [None]
  - DYSPNOEA [None]
  - ARTHROPATHY [None]
  - DISCOMFORT [None]
  - DYSPEPSIA [None]
  - FATIGUE [None]
  - NASOPHARYNGITIS [None]
  - ANKYLOSING SPONDYLITIS [None]
